FAERS Safety Report 11931432 (Version 1)
Quarter: 2016Q1

REPORT INFORMATION
  Report Type: Spontaneous
  Country: IE (occurrence: IE)
  Receive Date: 20160120
  Receipt Date: 20160120
  Transmission Date: 20160526
  Serious: Yes (Other)
  Sender: FDA-Public Use
  Company Number: IE-JNJFOC-20160108873

PATIENT
  Sex: Male

DRUGS (1)
  1. RISPERDAL [Suspect]
     Active Substance: RISPERIDONE
     Indication: PRODUCT USED FOR UNKNOWN INDICATION
     Dosage: FROM 10-JUL-(YEAR UNSPECIFIED) TO AN UNSPECIFIED DATE IN END OF OCT (3 MONTHS AND 3 WEEKS).
     Route: 048

REACTIONS (8)
  - Dysstasia [Unknown]
  - Dizziness [Unknown]
  - Nausea [Unknown]
  - Diplopia [Unknown]
  - Headache [Unknown]
  - Loss of consciousness [Unknown]
  - Neck mass [Unknown]
  - Infertility [Unknown]
